FAERS Safety Report 5265723-3 (Version None)
Quarter: 2007Q1

REPORT INFORMATION
  Report Type: 
  Country: None (occurrence: None)
  Receive Date: 20061213
  Receipt Date: 20041117
  Transmission Date: 20070707
  Serious: Yes (Other)
  Sender: FDA-Public Use
  Company Number: 2004UW23638

PATIENT
  Sex: Female
  Weight: 40.823 kg

DRUGS (3)
  1. IRESSA [Suspect]
     Indication: METASTASES TO CENTRAL NERVOUS SYSTEM
  2. IRESSA [Suspect]
     Indication: NON-SMALL CELL LUNG CANCER METASTATIC
  3. RADIATION THERAPY [Concomitant]

REACTIONS (1)
  - BLINDNESS [None]
